FAERS Safety Report 8117805-6 (Version None)
Quarter: 2012Q1

REPORT INFORMATION
  Report Type: 
  Country: None (occurrence: None)
  Receive Date: 20120202
  Receipt Date: 20120123
  Transmission Date: 20120608
  Serious: Yes (Hospitalization)
  Sender: FDA-Public Use
  Company Number: ALK_02187_2011

PATIENT
  Sex: Male
  Weight: 70 kg

DRUGS (3)
  1. CLONIDINE [Concomitant]
  2. METHOCARBAMOL [Concomitant]
  3. VIVITROL [Suspect]
     Indication: DRUG DEPENDENCE
     Dosage: (INTRAMUSCULAR)
     Route: 030

REACTIONS (4)
  - DIARRHOEA [None]
  - VOMITING [None]
  - BLOOD CREATININE INCREASED [None]
  - PSYCHOTIC DISORDER [None]
